FAERS Safety Report 22618830 (Version 8)
Quarter: 2023Q4

REPORT INFORMATION
  Report Type: Spontaneous
  Country: US (occurrence: US)
  Receive Date: 20230620
  Receipt Date: 20231113
  Transmission Date: 20240109
  Serious: No
  Sender: FDA-Public Use
  Company Number: US-PFIZER INC-PV202300104986

PATIENT
  Age: 13 Year
  Sex: Male

DRUGS (1)
  1. GENOTROPIN [Suspect]
     Active Substance: SOMATROPIN
     Dosage: 1.3 MG, DAILY (1.3 MG 7 DAYS PER WEEK)
     Dates: start: 202306

REACTIONS (7)
  - Incorrect dose administered by device [Unknown]
  - Drug dose omission by device [Unknown]
  - Needle issue [Unknown]
  - Device leakage [Unknown]
  - Intentional device misuse [Unknown]
  - Device breakage [Unknown]
  - Injection site discharge [Unknown]
